FAERS Safety Report 9294344 (Version 2)
Quarter: 2013Q2

REPORT INFORMATION
  Report Type: Spontaneous
  Country: US (occurrence: US)
  Receive Date: 20130517
  Receipt Date: 20130617
  Transmission Date: 20140414
  Serious: No
  Sender: FDA-Public Use
  Company Number: US-BIOGENIDEC-2013BI042500

PATIENT
  Age: 40 Year
  Sex: Female

DRUGS (1)
  1. TYSABRI [Suspect]
     Indication: MULTIPLE SCLEROSIS
     Route: 042
     Dates: start: 20130408

REACTIONS (6)
  - Miliaria [Recovered/Resolved]
  - Crying [Recovered/Resolved]
  - Emotional distress [Recovered/Resolved]
  - Rash papular [Recovered/Resolved]
  - Urticaria [Recovered/Resolved]
  - Rash pruritic [Not Recovered/Not Resolved]
